FAERS Safety Report 16160810 (Version 4)
Quarter: 2019Q4

REPORT INFORMATION
  Report Type: Report from Study
  Country: CA (occurrence: CA)
  Receive Date: 20190405
  Receipt Date: 20191227
  Transmission Date: 20200122
  Serious: Yes (Other)
  Sender: FDA-Public Use
  Company Number: PHHY2018CA083778

PATIENT
  Age: 34 Year
  Sex: Female

DRUGS (16)
  1. COSENTYX [Suspect]
     Active Substance: SECUKINUMAB
     Dosage: 300 MG, QMO
     Route: 058
  2. PREDNISONE. [Concomitant]
     Active Substance: PREDNISONE
     Dosage: 4 TABLETS ONCE DAILY X 2 WEEKS
     Route: 048
  3. REACTINE [Concomitant]
     Indication: PRODUCT USED FOR UNKNOWN INDICATION
     Dosage: UNK
     Route: 065
  4. COSENTYX [Suspect]
     Active Substance: SECUKINUMAB
     Dosage: 300 MG, QMO
     Route: 058
     Dates: start: 20190512, end: 20190512
  5. PREDNISONE. [Concomitant]
     Active Substance: PREDNISONE
     Indication: PRODUCT USED FOR UNKNOWN INDICATION
     Dosage: 5 MG, UNK
     Route: 065
  6. CYMBALTA [Concomitant]
     Active Substance: DULOXETINE HYDROCHLORIDE
     Indication: PRODUCT USED FOR UNKNOWN INDICATION
     Dosage: UNK
     Route: 065
  7. NAPROXEN. [Concomitant]
     Active Substance: NAPROXEN
     Indication: PRODUCT USED FOR UNKNOWN INDICATION
     Dosage: UNK
     Route: 065
  8. PREDNISONE. [Concomitant]
     Active Substance: PREDNISONE
     Dosage: 2 MG, UNK
     Route: 065
  9. PREDNISONE. [Concomitant]
     Active Substance: PREDNISONE
     Dosage: 3 TABLETS ONCE DAILY X 2 WEEKS
     Route: 048
  10. VIMOVO [Concomitant]
     Active Substance: ESOMEPRAZOLE MAGNESIUM\NAPROXEN
     Indication: PRODUCT USED FOR UNKNOWN INDICATION
     Dosage: UNK
     Route: 065
     Dates: start: 20180910
  11. PANTOLOC [Concomitant]
     Active Substance: PANTOPRAZOLE SODIUM
     Indication: PRODUCT USED FOR UNKNOWN INDICATION
     Dosage: 40 MG, UNK
     Route: 065
  12. PREDNISONE. [Concomitant]
     Active Substance: PREDNISONE
     Dosage: 2 TABLETS ONCE DAILY X 2 WEEKS
     Route: 048
  13. COSENTYX [Suspect]
     Active Substance: SECUKINUMAB
     Indication: PSORIATIC ARTHROPATHY
     Dosage: 150 MG, QW
     Route: 058
     Dates: start: 20180817
  14. COSENTYX [Suspect]
     Active Substance: SECUKINUMAB
     Indication: ANKYLOSING SPONDYLITIS
     Dosage: 150 MG, QMO
     Route: 058
  15. CELEBREX [Concomitant]
     Active Substance: CELECOXIB
     Indication: PRODUCT USED FOR UNKNOWN INDICATION
     Dosage: UNK
     Route: 065
  16. PREDNISONE. [Concomitant]
     Active Substance: PREDNISONE
     Dosage: 1 TABLET ONCE DAILY X 2 WEEKS
     Route: 048

REACTIONS (14)
  - Bacterial vaginosis [Unknown]
  - Pain [Unknown]
  - Weight decreased [Unknown]
  - Drug ineffective [Unknown]
  - Psoriatic arthropathy [Recovering/Resolving]
  - Sinusitis [Unknown]
  - Musculoskeletal stiffness [Unknown]
  - Synovitis [Unknown]
  - Sleep disorder [Unknown]
  - Rash [Unknown]
  - Back pain [Not Recovered/Not Resolved]
  - Spondyloarthropathy [Unknown]
  - Lower respiratory tract infection [Unknown]
  - Ankylosing spondylitis [Recovering/Resolving]

NARRATIVE: CASE EVENT DATE: 201808
